FAERS Safety Report 4820999-9 (Version None)
Quarter: 2005Q4

REPORT INFORMATION
  Report Type: 
  Country: None (occurrence: None)
  Receive Date: 20051104
  Receipt Date: 20050920
  Transmission Date: 20060501
  Serious: Yes (Death)
  Sender: FDA-Public Use
  Company Number: JP-SANOFI-SYNTHELABO-A01200506423

PATIENT
  Age: 54 Year
  Sex: Male
  Weight: 75 kg

DRUGS (7)
  1. OXALIPLATIN [Suspect]
     Dosage: 150MG/BODY=81.1 MG/M2, DR
     Dates: start: 20050816, end: 20050816
  2. FLUOROURACIL [Suspect]
     Indication: RECTAL CANCER
     Dosage: 1000MG/BODY=540.5 MG/M2, DR, D1+2
     Route: 042
     Dates: start: 20050816, end: 20050817
  3. CALCIUM LEVOFOLINATE [Concomitant]
     Dosage: 175MG/BODY=94.6MG/M2, DR
     Dates: start: 20050715, end: 20050816
  4. KYTRIL [Concomitant]
     Dates: start: 20050715, end: 20050816
  5. DECADRON SRC [Concomitant]
     Dosage: DR
     Dates: start: 20050715, end: 20050816
  6. CONCENTRATED RED CELLS [Concomitant]
     Dosage: DR
     Dates: start: 20050822, end: 20050902
  7. CONCENTRATED RED CELLS [Concomitant]
     Dates: start: 20050808, end: 20050909

REACTIONS (18)
  - ALANINE AMINOTRANSFERASE INCREASED [None]
  - ASPARTATE AMINOTRANSFERASE INCREASED [None]
  - BLOOD CREATINE INCREASED [None]
  - BLOOD CULTURE POSITIVE [None]
  - BLOOD LACTATE DEHYDROGENASE INCREASED [None]
  - BLOOD UREA INCREASED [None]
  - CULTURE URINE POSITIVE [None]
  - DIARRHOEA [None]
  - DISSEMINATED INTRAVASCULAR COAGULATION [None]
  - ENTEROCOCCAL INFECTION [None]
  - GASTROINTESTINAL HAEMORRHAGE [None]
  - HAEMOGLOBIN DECREASED [None]
  - LEUKOPENIA [None]
  - LIVER DISORDER [None]
  - NEUTROPENIA [None]
  - RENAL DISORDER [None]
  - SHOCK [None]
  - THROMBOCYTOPENIA [None]
